FAERS Safety Report 14233455 (Version 2)
Quarter: 2017Q4

REPORT INFORMATION
  Report Type: Report from Study
  Country: FR (occurrence: FR)
  Receive Date: 20171128
  Receipt Date: 20171208
  Transmission Date: 20180321
  Serious: Yes (Other)
  Sender: FDA-Public Use
  Company Number: FR-TEVA-2017-FR-826088

PATIENT
  Age: 68 Year
  Sex: Male

DRUGS (3)
  1. EZETIMIBE. [Concomitant]
     Active Substance: EZETIMIBE
     Route: 065
  2. ATORVASTATIN [Suspect]
     Active Substance: ATORVASTATIN
     Dosage: 80MG PER DAY FOR 5 YEARS
     Route: 065
  3. PRAVASTATIN. [Suspect]
     Active Substance: PRAVASTATIN
     Dosage: 5MG
     Route: 065
     Dates: start: 201306

REACTIONS (4)
  - Immune-mediated necrotising myopathy [Recovered/Resolved]
  - Pancreatic neoplasm [Unknown]
  - Cardiomyopathy [Unknown]
  - Atrial flutter [Unknown]
